FAERS Safety Report 5546539-7 (Version None)
Quarter: 2007Q4

REPORT INFORMATION
  Report Type: 
  Country: None (occurrence: None)
  Receive Date: 20071123
  Receipt Date: 20061026
  Transmission Date: 20080405
  Serious: Yes (Hospitalization, Other)
  Sender: FDA-Public Use
  Company Number: 31639

PATIENT
  Age: 74 Year
  Sex: Male
  Weight: 93.441 kg

DRUGS (1)
  1. LEUCOVORIN CALCIUM [Suspect]
     Indication: NEUROENDOCRINE TUMOUR
     Dosage: 400MG (200MG/M2) EVERY 2 WE
     Dates: start: 20060927

REACTIONS (2)
  - ANAEMIA [None]
  - FATIGUE [None]
